FAERS Safety Report 4651990-3 (Version None)
Quarter: 2005Q2

REPORT INFORMATION
  Report Type: 
  Country: None (occurrence: None)
  Receive Date: 20050504
  Receipt Date: 20050422
  Transmission Date: 20051028
  Serious: Yes (Other)
  Sender: FDA-Public Use
  Company Number: 200513502US

PATIENT
  Sex: 0

DRUGS (2)
  1. ARAVA [Suspect]
     Indication: RHEUMATOID ARTHRITIS
     Dosage: DOSE: UNK
  2. FUROSEMIDE [Suspect]
     Indication: FLUID RETENTION
     Dosage: DOSE: UNK

REACTIONS (4)
  - DYSPNOEA [None]
  - FLUID RETENTION [None]
  - RHEUMATOID ARTHRITIS [None]
  - WEIGHT DECREASED [None]
